FAERS Safety Report 19945687 (Version 2)
Quarter: 2021Q4

REPORT INFORMATION
  Report Type: Spontaneous
  Country: NL (occurrence: NL)
  Receive Date: 20211012
  Receipt Date: 20211014
  Transmission Date: 20220303
  Serious: Yes (Hospitalization, Other)
  Sender: FDA-Public Use
  Company Number: NL-MLMSERVICE-20210924-3127616-1

PATIENT
  Age: 27 Year
  Sex: Male

DRUGS (4)
  1. IBUTILIDE FUMARATE [Suspect]
     Active Substance: IBUTILIDE FUMARATE
     Indication: Atrial flutter
     Dosage: 1 MG (1 {TOTAL}, GIVEN ONCE AS A BOLUS)
     Route: 042
     Dates: start: 202006, end: 202006
  2. SOTALOL [Suspect]
     Active Substance: SOTALOL
     Dosage: 80 MG (PILL-IN-THE POCKET)
     Route: 048
     Dates: start: 2019
  3. SOTALOL [Suspect]
     Active Substance: SOTALOL
     Dosage: 80 MG, 2X/DAY
     Route: 048
     Dates: start: 202006, end: 2020
  4. MAGNESIUM [Concomitant]
     Active Substance: MAGNESIUM
     Indication: Prophylaxis
     Dosage: 750 MG
     Route: 042
     Dates: start: 202006

REACTIONS (2)
  - Electrocardiogram QT prolonged [Recovered/Resolved]
  - Electrocardiogram T wave abnormal [Recovered/Resolved]

NARRATIVE: CASE EVENT DATE: 20200601
